FAERS Safety Report 6039117-7 (Version None)
Quarter: 2009Q1

REPORT INFORMATION
  Report Type: 
  Country: None (occurrence: None)
  Receive Date: 20090115
  Receipt Date: 20090112
  Transmission Date: 20090719
  Serious: Yes (Death)
  Sender: FDA-Public Use
  Company Number: US-CELGENEUS-163-20785-08080894

PATIENT
  Sex: Male

DRUGS (2)
  1. THALOMID [Suspect]
     Indication: MULTIPLE MYELOMA
     Route: 048
     Dates: start: 20070821, end: 20080809
  2. THALOMID [Suspect]
     Dosage: 100-200MG
     Route: 048
     Dates: start: 20060712, end: 20070801

REACTIONS (1)
  - CARDIAC ARREST [None]
